FAERS Safety Report 16177773 (Version 1)
Quarter: 2019Q2

REPORT INFORMATION
  Report Type: Spontaneous
  Country: US (occurrence: US)
  Receive Date: 20190410
  Receipt Date: 20190410
  Transmission Date: 20190711
  Serious: No
  Sender: FDA-Public Use
  Company Number: US-TEVA-2019-US-1032773

PATIENT
  Sex: Male

DRUGS (1)
  1. TESTOSTERONE ACTAVIS [Suspect]
     Active Substance: TESTOSTERONE
     Route: 065

REACTIONS (2)
  - Eye irritation [Unknown]
  - Product odour abnormal [Unknown]
